FAERS Safety Report 8581086-X (Version None)
Quarter: 2012Q3

REPORT INFORMATION
  Report Type: 
  Country: None (occurrence: None)
  Receive Date: 20120809
  Receipt Date: 20120801
  Transmission Date: 20120928
  Serious: Yes (Hospitalization)
  Sender: FDA-Public Use
  Company Number: GB-ACCORD-014331

PATIENT
  Age: 69 Year
  Sex: Male
  Weight: 72 kg

DRUGS (10)
  1. NEDOCROMIL SODIUM (ALOCRIL) [Concomitant]
     Indication: ASTHMA
     Dosage: ONE PUFF
     Route: 055
  2. HYOSCINE HBR HYT [Concomitant]
     Route: 048
  3. OMEPRAZOLE [Concomitant]
     Route: 048
  4. CREON [Concomitant]
     Dosage: AS NECESSARY
     Route: 048
  5. CODEINE PHOSPHATE [Concomitant]
     Indication: PAIN
     Route: 048
  6. ALTACITE PLUS [Concomitant]
     Indication: GASTROOESOPHAGEAL REFLUX DISEASE
     Route: 048
  7. DEXAMETHASONE [Concomitant]
     Route: 048
     Dates: start: 20120412
  8. ACETAMINOPHEN [Concomitant]
     Indication: PAIN
     Dosage: AS NECESSARY
     Route: 048
  9. GEMCITABINE HYDROCHLORIDE [Suspect]
     Route: 042
     Dates: start: 20120118, end: 20120328
  10. SIMVASTATIN [Concomitant]
     Route: 048

REACTIONS (1)
  - PULMONARY EMBOLISM [None]
